FAERS Safety Report 9914718 (Version 2)
Quarter: 2014Q2

REPORT INFORMATION
  Report Type: Spontaneous
  Country: US (occurrence: US)
  Receive Date: 20140220
  Receipt Date: 20140620
  Transmission Date: 20141212
  Serious: Yes (Death, Life-Threatening, Hospitalization, Other)
  Sender: FDA-Public Use
  Company Number: US-MERCK-1402USA008051

PATIENT
  Sex: Male
  Weight: 120.18 kg

DRUGS (1)
  1. JANUVIA [Suspect]
     Indication: TYPE 2 DIABETES MELLITUS
     Dosage: 100 MG, QD
     Route: 048
     Dates: start: 20110924, end: 20120215

REACTIONS (12)
  - Pancreatic carcinoma [Fatal]
  - Cardio-respiratory arrest [Fatal]
  - Atrial fibrillation [Unknown]
  - Hypokalaemia [Unknown]
  - Cardiac failure congestive [Unknown]
  - Renal cyst [Unknown]
  - Inguinal hernia [Unknown]
  - Radiotherapy to prostate [Unknown]
  - Arteriosclerosis [Unknown]
  - Hypertension [Unknown]
  - Anxiety [Unknown]
  - Osteoarthritis [Unknown]
